FAERS Safety Report 20711949 (Version 1)
Quarter: 2022Q2

REPORT INFORMATION
  Report Type: Report from Study
  Country: US (occurrence: US)
  Receive Date: 20220414
  Receipt Date: 20220414
  Transmission Date: 20220720
  Serious: No
  Sender: FDA-Public Use
  Company Number: US-KYOWAKIRIN-2022BKK005257

PATIENT

DRUGS (1)
  1. CRYSVITA [Suspect]
     Active Substance: BUROSUMAB-TWZA
     Indication: Hereditary hypophosphataemic rickets
     Dosage: 4 MG, EVERY 14 DAYS
     Route: 058
     Dates: start: 20211118

REACTIONS (2)
  - Abdominal discomfort [Unknown]
  - Food allergy [Unknown]

NARRATIVE: CASE EVENT DATE: 20220101
